FAERS Safety Report 12821244 (Version 3)
Quarter: 2016Q4

REPORT INFORMATION
  Report Type: Spontaneous
  Country: GB (occurrence: GB)
  Receive Date: 20161007
  Receipt Date: 20161122
  Transmission Date: 20170207
  Serious: Yes (Hospitalization, Other)
  Sender: FDA-Public Use
  Company Number: GB-009507513-1609GBR012386

PATIENT
  Age: 32 Year
  Sex: Female
  Weight: 61.7 kg

DRUGS (3)
  1. ULIPRISTAL [Concomitant]
     Active Substance: ULIPRISTAL
     Dosage: UNK
  2. SERTRALINE HYDROCHLORIDE. [Concomitant]
     Active Substance: SERTRALINE HYDROCHLORIDE
     Indication: ANXIETY
     Dosage: 50 MG, ONCE DAILY
     Route: 048
     Dates: start: 20160707, end: 20160819
  3. NEXPLANON [Suspect]
     Active Substance: ETONOGESTREL
     Indication: CHEMICAL CONTRACEPTION
     Dosage: 1 DF, UNK
     Route: 058
     Dates: start: 20160428, end: 20160811

REACTIONS (7)
  - Abortion spontaneous [Unknown]
  - Pregnancy with implant contraceptive [Recovered/Resolved]
  - Unintended pregnancy [Recovered/Resolved]
  - Product use issue [Unknown]
  - Pregnancy of unknown location [Recovered/Resolved]
  - Weight increased [Unknown]
  - Mood altered [Unknown]

NARRATIVE: CASE EVENT DATE: 2016
